FAERS Safety Report 8224637-7 (Version None)
Quarter: 2012Q1

REPORT INFORMATION
  Report Type: 
  Country: None (occurrence: None)
  Receive Date: 20120321
  Receipt Date: 20120316
  Transmission Date: 20120608
  Serious: Yes (Death, Hospitalization)
  Sender: FDA-Public Use
  Company Number: US-CELGENEUS-163-50794-12031961

PATIENT
  Age: 74 Year
  Sex: Male
  Weight: 70.76 kg

DRUGS (1)
  1. VIDAZA [Suspect]
     Dosage: 75 MILLIGRAM/SQ. METER
     Route: 058
     Dates: start: 20120225, end: 20120226

REACTIONS (1)
  - ACUTE MYELOID LEUKAEMIA [None]
